FAERS Safety Report 11079017 (Version 3)
Quarter: 2015Q2

REPORT INFORMATION
  Report Type: Spontaneous
  Country: DE (occurrence: DE)
  Receive Date: 20150430
  Receipt Date: 20150526
  Transmission Date: 20150821
  Serious: Yes (Hospitalization, Other)
  Sender: FDA-Public Use
  Company Number: DE-JNJFOC-20150420955

PATIENT
  Age: 56 Year
  Sex: Male
  Weight: 72 kg

DRUGS (6)
  1. PROPRANOLOL [Concomitant]
     Active Substance: PROPRANOLOL\PROPRANOLOL HYDROCHLORIDE
     Indication: HYPERTENSION
     Route: 065
     Dates: start: 2014
  2. JANUMET [Concomitant]
     Active Substance: METFORMIN HYDROCHLORIDE\SITAGLIPTIN PHOSPHATE
     Indication: DIABETES MELLITUS
     Dosage: 50/1000 MG
     Route: 065
     Dates: start: 2012
  3. LEFLUNOMIDE. [Concomitant]
     Active Substance: LEFLUNOMIDE
     Route: 048
     Dates: start: 20090731, end: 201504
  4. VITAMIN B12 [Concomitant]
     Active Substance: CYANOCOBALAMIN
     Indication: PERNICIOUS ANAEMIA
     Route: 058
     Dates: start: 2011
  5. GLIMEPRID [Concomitant]
     Active Substance: GLIMEPIRIDE
     Indication: DIABETES MELLITUS
     Dosage: 3MG 1/2 TAB
     Route: 048
     Dates: start: 2012
  6. REMICADE [Suspect]
     Active Substance: INFLIXIMAB
     Indication: PSORIATIC ARTHROPATHY
     Route: 042
     Dates: start: 201011

REACTIONS (9)
  - Portal hypertension [Recovered/Resolved with Sequelae]
  - Diabetes mellitus [Unknown]
  - Hypertension [Unknown]
  - Chronic gastritis [Unknown]
  - Nodular regenerative hyperplasia [Unknown]
  - Calculus bladder [Recovered/Resolved with Sequelae]
  - Hepatic cirrhosis [Unknown]
  - Pernicious anaemia [Unknown]
  - Oesophageal varices haemorrhage [Recovered/Resolved with Sequelae]

NARRATIVE: CASE EVENT DATE: 2011
